FAERS Safety Report 19213197 (Version 1)
Quarter: 2021Q2

REPORT INFORMATION
  Report Type: Spontaneous
  Country: GB (occurrence: GB)
  Receive Date: 20210504
  Receipt Date: 20210504
  Transmission Date: 20210717
  Serious: Yes (Life-Threatening, Hospitalization, Other)
  Sender: FDA-Public Use
  Company Number: GB-SA-2021SA075966

PATIENT
  Age: 86 Year
  Sex: Male

DRUGS (9)
  1. DAPAGLIFLOZIN. [Concomitant]
     Active Substance: DAPAGLIFLOZIN
     Indication: CARDIAC FAILURE
     Dosage: 5 MG, QD
     Route: 048
  2. AMIODARONE HYDROCHLORIDE. [Interacting]
     Active Substance: AMIODARONE HYDROCHLORIDE
     Indication: VENTRICULAR TACHYCARDIA
  3. CLOPIDOGREL BISULFATE. [Suspect]
     Active Substance: CLOPIDOGREL BISULFATE
     Indication: ANGINA UNSTABLE
     Dosage: 300 MG
  4. BISOPROLOL [Concomitant]
     Active Substance: BISOPROLOL
     Dosage: 10 MG, QD
  5. CLOPIDOGREL BISULFATE. [Interacting]
     Active Substance: CLOPIDOGREL BISULFATE
     Dosage: 75 MG
  6. RIVAROXABAN [Interacting]
     Active Substance: RIVAROXABAN
     Indication: ATRIAL FIBRILLATION
     Dosage: 15 MG, QD
     Route: 065
  7. EPLERENONE. [Concomitant]
     Active Substance: EPLERENONE
     Indication: CARDIAC FAILURE
     Dosage: 25 MG, QD
     Route: 048
  8. AMIODARONE HYDROCHLORIDE. [Interacting]
     Active Substance: AMIODARONE HYDROCHLORIDE
     Indication: ATRIAL FIBRILLATION
     Dosage: 100 MG
  9. RAMIPRIL. [Concomitant]
     Active Substance: RAMIPRIL
     Dosage: 2.5 MG

REACTIONS (18)
  - Anuria [Recovered/Resolved]
  - Urine output decreased [Recovered/Resolved]
  - Metabolic acidosis [Recovered/Resolved]
  - Pleural effusion [Recovered/Resolved]
  - Acute kidney injury [Recovered/Resolved]
  - Blood creatinine increased [Recovered/Resolved]
  - Pericardial haemorrhage [Recovered/Resolved]
  - Cardiac tamponade [Recovered/Resolved]
  - Inferior vena cava dilatation [Recovered/Resolved]
  - Renal failure [Recovered/Resolved]
  - Pericardial effusion [Recovered/Resolved]
  - General physical health deterioration [Recovered/Resolved]
  - Right ventricular diastolic collapse [Recovered/Resolved]
  - Hyperkalaemia [Recovered/Resolved]
  - Drug clearance decreased [Recovered/Resolved]
  - Drug interaction [Recovered/Resolved]
  - Hypotension [Recovered/Resolved]
  - Fluid overload [Recovered/Resolved]
